FAERS Safety Report 5318192-9 (Version None)
Quarter: 2007Q2

REPORT INFORMATION
  Report Type: 
  Country: None (occurrence: None)
  Receive Date: 20070507
  Receipt Date: 20070425
  Transmission Date: 20071010
  Serious: Yes (Hospitalization)
  Sender: FDA-Public Use
  Company Number: US-PFIZER INC-2006022109

PATIENT
  Sex: Female
  Weight: 87.1 kg

DRUGS (9)
  1. SU-011,248 [Suspect]
     Indication: RENAL CELL CARCINOMA STAGE UNSPECIFIED
     Route: 048
  2. LESCOL [Concomitant]
     Dosage: TEXT:UNKNOWN-FREQ:UNKNOWN
     Route: 048
  3. FOSAMAX [Concomitant]
     Dosage: TEXT:UNKNOWN-FREQ:UNKNOWN
     Route: 048
  4. RITALIN [Concomitant]
     Indication: FATIGUE
     Dosage: TEXT:UNKNOWN-FREQ:UNKNOWN
     Route: 048
     Dates: start: 20051218, end: 20060203
  5. ACETAMINOPHEN [Concomitant]
     Dosage: TEXT:UNKNOWN-FREQ:UNKNOWN
     Route: 048
  6. ALEVE [Concomitant]
     Dosage: TEXT:UNKNOWN-FREQ:UNKNOWN
     Route: 048
  7. MAALOX FAST BLOCKER [Concomitant]
     Indication: DYSPEPSIA
     Dosage: TEXT:UNKNOWN-FREQ:UNKNOWN
     Route: 048
  8. NEXIUM [Concomitant]
     Indication: DYSPEPSIA
     Dosage: TEXT:UNKNOWN-FREQ:UNKNOWN
     Route: 048
  9. PROVIGIL [Concomitant]
     Dosage: TEXT:UNKNOWN-FREQ:UNKNOWN
     Route: 048

REACTIONS (1)
  - CHEST PAIN [None]
